FAERS Safety Report 6147138-9 (Version None)
Quarter: 2009Q2

REPORT INFORMATION
  Report Type: 
  Country: None (occurrence: None)
  Receive Date: 20090406
  Receipt Date: 20090326
  Transmission Date: 20091009
  Serious: Yes (Life-Threatening)
  Sender: FDA-Public Use
  Company Number: 228744

PATIENT
  Age: 69 Year
  Sex: Male
  Weight: 54.4316 kg

DRUGS (6)
  1. PACLITAXEL [Suspect]
     Indication: SMALL CELL LUNG CANCER STAGE UNSPECIFIED
     Dosage: 122 MG, WEEKLY 3/4, INTRAVENOUS
     Route: 042
     Dates: start: 20090306, end: 20090306
  2. PACLITAXEL [Suspect]
     Indication: SMALL CELL LUNG CANCER STAGE UNSPECIFIED
     Dosage: 122 MG, WEEKLY 3/4, INTRAVENOUS
     Route: 042
     Dates: start: 20090313, end: 20090313
  3. GRANISETRON HCL [Concomitant]
  4. DEXAMETHASONE 4MG TAB [Concomitant]
  5. BENADRYL [Concomitant]
  6. TAGAMET [Concomitant]

REACTIONS (5)
  - CARDIO-RESPIRATORY ARREST [None]
  - DRUG HYPERSENSITIVITY [None]
  - LOSS OF CONSCIOUSNESS [None]
  - PULSE ABSENT [None]
  - RESPIRATORY FAILURE [None]
